FAERS Safety Report 4939796-9 (Version None)
Quarter: 2006Q1

REPORT INFORMATION
  Report Type: 
  Country: None (occurrence: None)
  Receive Date: 20060310
  Receipt Date: 20050315
  Transmission Date: 20060701
  Serious: No
  Sender: FDA-Public Use
  Company Number: US-MERCK-0503USA03123

PATIENT
  Age: 38 Year
  Sex: Female
  Weight: 102 kg

DRUGS (2)
  1. VIOXX [Suspect]
     Indication: FIBROMYALGIA
     Route: 048
     Dates: start: 20000101, end: 20040101
  2. CELEBREX [Concomitant]
     Route: 065

REACTIONS (4)
  - EMOTIONAL DISTRESS [None]
  - FIBROMYALGIA [None]
  - HEART RATE INCREASED [None]
  - PRESCRIBED OVERDOSE [None]
